FAERS Safety Report 9828806 (Version 2)
Quarter: 2016Q2

REPORT INFORMATION
  Report Type: Report from Study
  Country: US (occurrence: US)
  Receive Date: 20140118
  Receipt Date: 20160426
  Transmission Date: 20160815
  Serious: Yes (Hospitalization, Other)
  Sender: FDA-Public Use
  Company Number: US-ROCHE-1333186

PATIENT
  Sex: Female

DRUGS (12)
  1. BETADINE [Concomitant]
     Active Substance: POVIDONE-IODINE
     Route: 061
  2. TETRAVISC [Concomitant]
     Active Substance: TETRACAINE HYDROCHLORIDE
     Route: 061
  3. METOPROLOL. [Concomitant]
     Active Substance: METOPROLOL
     Dosage: TAKE HALF TAB IN AM AND THE OTHER HALF IN PM
     Route: 048
  4. SYNTHROID [Concomitant]
     Active Substance: LEVOTHYROXINE SODIUM
     Indication: HYPOTHYROIDISM
     Route: 065
  5. ZOCOR [Concomitant]
     Active Substance: SIMVASTATIN
     Indication: BLOOD CHOLESTEROL
     Route: 048
  6. XYLOCAINE [Concomitant]
     Active Substance: LIDOCAINE HYDROCHLORIDE
     Route: 057
  7. XYLOCAINE [Concomitant]
     Active Substance: LIDOCAINE HYDROCHLORIDE
     Route: 061
  8. TRAMADOL. [Concomitant]
     Active Substance: TRAMADOL
     Indication: FIBROMYALGIA
     Dosage: TAKE ABOUT 2-3 A DAY
     Route: 048
  9. SERTRALINE [Concomitant]
     Active Substance: SERTRALINE HYDROCHLORIDE
     Indication: DEPRESSION
     Route: 065
  10. LUCENTIS [Suspect]
     Active Substance: RANIBIZUMAB
     Indication: MACULAR DEGENERATION
     Dosage: BEEN TAKING FOR SEVERAL YEARS
     Route: 050
  11. SINEQUAN [Concomitant]
     Active Substance: DOXEPIN HYDROCHLORIDE
     Indication: INSOMNIA
     Dosage: TAKES AT NIGHT
     Route: 048
  12. LISINOPRIL. [Concomitant]
     Active Substance: LISINOPRIL
     Indication: HYPERTENSION
     Route: 048

REACTIONS (9)
  - Fall [Unknown]
  - Pain [Unknown]
  - Upper limb fracture [Unknown]
  - Blindness [Unknown]
  - Vision blurred [Unknown]
  - Fibromyalgia [Not Recovered/Not Resolved]
  - Acquired corneal dystrophy [Unknown]
  - Corneal oedema [Unknown]
  - Insomnia [Not Recovered/Not Resolved]
